FAERS Safety Report 5324090-7 (Version None)
Quarter: 2007Q2

REPORT INFORMATION
  Report Type: 
  Country: None (occurrence: None)
  Receive Date: 20070514
  Receipt Date: 20060328
  Transmission Date: 20071010
  Serious: No
  Sender: FDA-Public Use
  Company Number: A0599382A

PATIENT
  Age: 50 Year
  Sex: Female

DRUGS (3)
  1. RELAFEN [Suspect]
     Dosage: 500MG TWICE PER DAY
     Route: 048
     Dates: start: 19890101
  2. NABUMETONE [Suspect]
     Route: 048
     Dates: start: 20030101
  3. ATENOLOL [Concomitant]

REACTIONS (3)
  - DIZZINESS [None]
  - FATIGUE [None]
  - FEELING ABNORMAL [None]
